FAERS Safety Report 7765130-5 (Version None)
Quarter: 2011Q3

REPORT INFORMATION
  Report Type: 
  Country: None (occurrence: None)
  Receive Date: 20110916
  Receipt Date: 20110902
  Transmission Date: 20111222
  Serious: Yes (Life-Threatening, Hospitalization)
  Sender: FDA-Public Use
  Company Number: DSA_47609_2011

PATIENT
  Age: 23 Month
  Sex: Male

DRUGS (3)
  1. FLOVENT [Concomitant]
  2. ENALAPRIL MALEATE [Suspect]
     Indication: HYPERTENSION
     Dosage: DF ORAL
     Route: 048
  3. ZANTAC [Concomitant]

REACTIONS (5)
  - HYPOTENSION [None]
  - ANGIOEDEMA [None]
  - ANAPHYLACTIC REACTION [None]
  - UPPER AIRWAY OBSTRUCTION [None]
  - BLOOD IMMUNOGLOBULIN A INCREASED [None]
